FAERS Safety Report 6782097-7 (Version None)
Quarter: 2010Q2

REPORT INFORMATION
  Report Type: 
  Country: None (occurrence: None)
  Receive Date: 20100621
  Receipt Date: 20100610
  Transmission Date: 20101027
  Serious: Yes (Other)
  Sender: FDA-Public Use
  Company Number: US-JNJCH-2010014253

PATIENT
  Sex: Female

DRUGS (1)
  1. LISTERINE WHITENING QUICK DISSOLVING STRIPS [Suspect]
     Indication: DENTAL CARE
     Dosage: TEXT:UNKNOWN
     Route: 048

REACTIONS (5)
  - APPLICATION SITE REACTION [None]
  - GINGIVAL DISORDER [None]
  - ORAL PAIN [None]
  - TOOTH INJURY [None]
  - TOOTH LOSS [None]
